APPROVED DRUG PRODUCT: PERPHENAZINE
Active Ingredient: PERPHENAZINE
Strength: 4MG
Dosage Form/Route: TABLET;ORAL
Application: A089685 | Product #003 | TE Code: AB
Applicant: SANDOZ INC
Approved: Dec 8, 1988 | RLD: No | RS: No | Type: RX